FAERS Safety Report 13693010 (Version 1)
Quarter: 2017Q2

REPORT INFORMATION
  Report Type: Spontaneous
  Country: DE (occurrence: DE)
  Receive Date: 20170627
  Receipt Date: 20170627
  Transmission Date: 20170830
  Serious: Yes (Other)
  Sender: FDA-Public Use
  Company Number: DE-SUN PHARMACEUTICAL INDUSTRIES LTD-2017RR-143529

PATIENT
  Age: 1 Day
  Sex: Female
  Weight: 2.68 kg

DRUGS (8)
  1. VENLAFAXINE [Concomitant]
     Active Substance: VENLAFAXINE HYDROCHLORIDE
     Indication: DEPRESSION
     Dosage: 150 [MG/D ]/EVERY SECOND DAY, INITIAL 150 MG/D, THEN 75 MG/D
     Route: 064
  2. MIRTAZAPIN [Suspect]
     Active Substance: MIRTAZAPINE
     Indication: DEPRESSION
     Dosage: 15 [MG/D]/CHANGE OF MEDICAL ANTIDEPRESSIVE TREATMENT BECAUSE OF ACCOMPANYING NAUSEA
     Route: 064
  3. FOLIO [Concomitant]
     Active Substance: FOLIC ACID
     Indication: PROPHYLAXIS OF NEURAL TUBE DEFECT
     Dosage: 0.4 [MG/D ], QD
     Route: 064
     Dates: start: 20160421, end: 20160819
  4. HUMALOG [Concomitant]
     Active Substance: INSULIN LISPRO
     Indication: GESTATIONAL DIABETES
     Route: 064
  5. PROPESS 10 MG VAGINALINSERT [Concomitant]
     Indication: LABOUR INDUCTION
     Dosage: UNK
     Route: 064
     Dates: start: 20170126, end: 20170126
  6. INFLUSPLIT TETRA [Concomitant]
     Active Substance: INFLUENZA VIRUS VACCINE
     Indication: IMMUNISATION
     Dosage: UNK
     Route: 064
     Dates: start: 20161116, end: 20161116
  7. VOMEX A [Concomitant]
     Active Substance: DIMENHYDRINATE
     Indication: VOMITING IN PREGNANCY
     Dosage: TWICE I.V. AND DIMENHYDRINATE ORALLY ON DEMAND
     Route: 064
  8. ABASAGLAR [Concomitant]
     Active Substance: INSULIN GLARGINE
     Indication: GESTATIONAL DIABETES
     Dosage: 10 [I.E./D(ABENDS)]
     Route: 064

REACTIONS (1)
  - Small for dates baby [Unknown]

NARRATIVE: CASE EVENT DATE: 20170127
